FAERS Safety Report 20842755 (Version 1)
Quarter: 2022Q2

REPORT INFORMATION
  Report Type: Spontaneous
  Country: US (occurrence: US)
  Receive Date: 20220518
  Receipt Date: 20220518
  Transmission Date: 20220720
  Serious: No
  Sender: FDA-Public Use
  Company Number: US-GLAXOSMITHKLINE-USCH2022016845

PATIENT
  Sex: Female

DRUGS (1)
  1. TARGET NICOTINE [Interacting]
     Active Substance: NICOTINE
     Indication: Nicotine dependence
     Dosage: UNK

REACTIONS (4)
  - Sleep disorder [Unknown]
  - Nightmare [Unknown]
  - Drug interaction [Unknown]
  - Wrong technique in product usage process [Unknown]

NARRATIVE: CASE EVENT DATE: 20220508
